FAERS Safety Report 7261550-6 (Version None)
Quarter: 2011Q1

REPORT INFORMATION
  Report Type: 
  Country: None (occurrence: None)
  Receive Date: 20110130
  Receipt Date: 20101124
  Transmission Date: 20110831
  Serious: No
  Sender: FDA-Public Use
  Company Number: US-ABBOTT-10P-163-0672711-00

PATIENT
  Sex: Female
  Weight: 74.456 kg

DRUGS (4)
  1. HUMIRA [Suspect]
  2. MOBIC [Concomitant]
     Indication: INFLAMMATION
  3. GLYBURIDE [Concomitant]
     Indication: DIABETES MELLITUS
  4. HUMIRA [Suspect]
     Indication: PSORIASIS
     Dates: start: 20100920

REACTIONS (4)
  - DEVICE MALFUNCTION [None]
  - WEIGHT INCREASED [None]
  - INJECTION SITE PAIN [None]
  - INCORRECT DOSE ADMINISTERED [None]
